FAERS Safety Report 23283785 (Version 3)
Quarter: 2024Q1

REPORT INFORMATION
  Report Type: Spontaneous
  Country: NL (occurrence: NL)
  Receive Date: 20231211
  Receipt Date: 20240326
  Transmission Date: 20240410
  Serious: Yes (Hospitalization, Other)
  Sender: FDA-Public Use
  Company Number: NL-ABBVIE-4699317

PATIENT
  Sex: Male

DRUGS (15)
  1. LACTULOSE [Suspect]
     Active Substance: LACTULOSE
     Indication: Infrequent bowel movements
     Dosage: 15 MILLILITER 0.08 (180 MILLILITER)
     Route: 048
  2. CARBIDOPA\LEVODOPA [Suspect]
     Active Substance: CARBIDOPA\LEVODOPA
     Indication: Parkinson^s disease
     Dosage: MD: 6.5ML CD: 2.5ML ED: 2.0ML, REMAINS AT 16 HOURSREMAINS AT 16 HOURS
     Route: 065
  3. CARBIDOPA\LEVODOPA [Suspect]
     Active Substance: CARBIDOPA\LEVODOPA
     Dosage: MD: 6.5ML CD: 2.8ML ED: 2.0ML, REMAINS AT 16 HOURS
     Route: 065
     Dates: start: 20210421
  4. CARBIDOPA\LEVODOPA [Suspect]
     Active Substance: CARBIDOPA\LEVODOPA
     Dosage: MD: 6.5ML CD: 2.6ML ED: 2.0ML, REMAINS AT 16 HOURS
     Route: 065
     Dates: start: 20230608, end: 20230906
  5. CARBIDOPA\LEVODOPA [Suspect]
     Active Substance: CARBIDOPA\LEVODOPA
     Dosage: MD: 6.5ML CD: 2.4ML ED: 2.0MLREMAINS AT 16 HOURS
     Route: 065
     Dates: start: 20230905, end: 20231123
  6. CARBIDOPA\LEVODOPA [Suspect]
     Active Substance: CARBIDOPA\LEVODOPA
     Dosage: MD: 6.5ML CD: 2.4ML ED: 2.0MLREMAINS AT 16 HOURS
     Route: 065
     Dates: start: 20231123, end: 20231127
  7. CARBIDOPA\LEVODOPA [Suspect]
     Active Substance: CARBIDOPA\LEVODOPA
     Dosage: MD: 6.0ML CD: 2.4ML ED: 2.0ML
     Route: 065
     Dates: start: 20231127, end: 20240215
  8. CARBIDOPA\LEVODOPA [Suspect]
     Active Substance: CARBIDOPA\LEVODOPA
     Dosage: MD: 6.0ML CD: 2.4ML ED: 2.0ML
     Route: 065
     Dates: start: 20240215
  9. CARBIDOPA\LEVODOPA [Suspect]
     Active Substance: CARBIDOPA\LEVODOPA
     Dosage: MD: 6.5ML CD: 2.4ML ED: 2.0MLREMAINS AT 16 HOURS
     Route: 065
     Dates: start: 202309, end: 20231123
  10. AMANTADINE [Concomitant]
     Active Substance: AMANTADINE
     Indication: Parkinson^s disease
     Dosage: 100 MILLIGRAM, 3 TIMES A DAY(300 MILLIGRAM)
     Route: 065
     Dates: start: 201703
  11. ENTACAPONE [Concomitant]
     Active Substance: ENTACAPONE
     Indication: Parkinson^s disease
     Dosage: UNK (0.2 DAYS)
     Route: 048
     Dates: start: 201603
  12. CARBIDOPA AND LEVODOPA [Concomitant]
     Active Substance: CARBIDOPA\LEVODOPA
     Indication: Parkinson^s disease
     Dosage: 125 MILLIGRAM 0.2 DAY (625 MILLIGRAM)
     Route: 048
     Dates: start: 201608
  13. BENSERAZIDE\LEVODOPA [Concomitant]
     Active Substance: BENSERAZIDE\LEVODOPA
     Indication: Parkinson^s disease
     Dosage: UNK
     Route: 048
     Dates: start: 201606
  14. BENSERAZIDE HYDROCHLORIDE\LEVODOPA [Concomitant]
     Active Substance: BENSERAZIDE HYDROCHLORIDE\LEVODOPA
     Indication: Muscle rigidity
     Dosage: NOT LATER THAN 4AM
     Route: 065
  15. MOVICOLON [Concomitant]
     Active Substance: POLYETHYLENE GLYCOL 3350\POTASSIUM CHLORIDE\SODIUM BICARBONATE\SODIUM CHLORIDE
     Indication: Bowel movement irregularity
     Dosage: UNK
     Route: 065

REACTIONS (28)
  - Hospitalisation [Recovered/Resolved]
  - Hallucination [Recovered/Resolved]
  - Reduced facial expression [Not Recovered/Not Resolved]
  - Unevaluable event [Not Recovered/Not Resolved]
  - Tension [Not Recovered/Not Resolved]
  - On and off phenomenon [Not Recovered/Not Resolved]
  - Obsessive-compulsive disorder [Unknown]
  - Muscle rigidity [Not Recovered/Not Resolved]
  - Dysphemia [Not Recovered/Not Resolved]
  - Fatigue [Not Recovered/Not Resolved]
  - Dyskinesia [Not Recovered/Not Resolved]
  - Gait disturbance [Not Recovered/Not Resolved]
  - Somnolence [Unknown]
  - Mobility decreased [Not Recovered/Not Resolved]
  - Nocturia [Not Recovered/Not Resolved]
  - Diarrhoea [Not Recovered/Not Resolved]
  - Freezing phenomenon [Not Recovered/Not Resolved]
  - Restlessness [Not Recovered/Not Resolved]
  - Food craving [Not Recovered/Not Resolved]
  - Stoma site reaction [Not Recovered/Not Resolved]
  - Fibroma [Not Recovered/Not Resolved]
  - Stress [Not Recovered/Not Resolved]
  - Infrequent bowel movements [Not Recovered/Not Resolved]
  - Depressed mood [Not Recovered/Not Resolved]
  - Speech disorder [Not Recovered/Not Resolved]
  - Fall [Recovered/Resolved]
  - Product dose confusion [Not Recovered/Not Resolved]
  - Inappropriate schedule of product administration [Not Recovered/Not Resolved]

NARRATIVE: CASE EVENT DATE: 20231101
